FAERS Safety Report 5945593-8 (Version None)
Quarter: 2008Q4

REPORT INFORMATION
  Report Type: 
  Country: None (occurrence: None)
  Receive Date: 20081105
  Receipt Date: 20081024
  Transmission Date: 20090506
  Serious: Yes (Death)
  Sender: FDA-Public Use
  Company Number: 1000001544

PATIENT
  Age: 56 Year
  Sex: Female

DRUGS (3)
  1. LEXAPRO [Suspect]
     Indication: DEPRESSION
     Dosage: 10 MG (10 MG, ONCE), ORAL
     Route: 048
     Dates: start: 20081019, end: 20081019
  2. TALCID (TABLETS) [Concomitant]
  3. OMEPRAZOLE [Concomitant]

REACTIONS (1)
  - COMPLETED SUICIDE [None]
